FAERS Safety Report 11450695 (Version 1)
Quarter: 2015Q3

REPORT INFORMATION
  Report Type: Spontaneous
  Country: US (occurrence: US)
  Receive Date: 20150903
  Receipt Date: 20150903
  Transmission Date: 20151125
  Serious: No
  Sender: FDA-Public Use
  Company Number: US-ROCHE-1028657

PATIENT
  Age: 60 Year
  Sex: Male
  Weight: 75.82 kg

DRUGS (9)
  1. PEGASYS [Suspect]
     Active Substance: PEGINTERFERON ALFA-2A
     Indication: CHRONIC HEPATITIS C
     Route: 065
  2. INCIVEK [Interacting]
     Active Substance: TELAPREVIR
     Dosage: DOSE REDUCED TO HALF
     Route: 065
  3. ENALAPRIL [Concomitant]
     Active Substance: ENALAPRIL
     Route: 065
  4. POTASSIUM CHLORIDE. [Concomitant]
     Active Substance: POTASSIUM CHLORIDE
     Route: 065
  5. ATENOLOL. [Concomitant]
     Active Substance: ATENOLOL
     Route: 065
  6. COPEGUS [Interacting]
     Active Substance: RIBAVIRIN
     Indication: CHRONIC HEPATITIS C
     Route: 065
  7. PEGASYS [Interacting]
     Active Substance: PEGINTERFERON ALFA-2A
     Dosage: DOSE REDUCED TO HALF
     Route: 065
  8. INCIVEK [Interacting]
     Active Substance: TELAPREVIR
     Indication: CHRONIC HEPATITIS C
     Route: 065
     Dates: start: 20120109
  9. COPEGUS [Interacting]
     Active Substance: RIBAVIRIN
     Dosage: DOSE REDUCED TO HALF
     Route: 065

REACTIONS (5)
  - Blood creatinine increased [Recovered/Resolved]
  - Blood creatinine increased [Recovering/Resolving]
  - Drug interaction [Unknown]
  - Hypokalaemia [Recovered/Resolved]
  - Toxicity to various agents [Recovering/Resolving]

NARRATIVE: CASE EVENT DATE: 20111219
